FAERS Safety Report 5355264-7 (Version None)
Quarter: 2007Q2

REPORT INFORMATION
  Report Type: 
  Country: None (occurrence: None)
  Receive Date: 20070525
  Receipt Date: 20061027
  Transmission Date: 20071010
  Serious: Yes (Hospitalization)
  Sender: FDA-Public Use
  Company Number: 2006SP003861

PATIENT
  Age: 53 Year
  Sex: Female
  Weight: 74.8435 kg

DRUGS (7)
  1. XOPENEX [Suspect]
     Indication: ASTHMA
     Dosage: 0.63 MG/3ML;Q6H; INHALATION
     Route: 055
     Dates: start: 20060101, end: 20061001
  2. XOPENEX HFA [Suspect]
     Indication: ASTHMA
     Dosage: ;PRN;INHALATION
     Route: 055
     Dates: start: 20060101, end: 20061001
  3. PREDNISONE [Concomitant]
  4. ADVAIR DISKUS 100/50 [Concomitant]
  5. UNSPECIFIED MEDICATION FOR SLEEP [Concomitant]
  6. VITAMINS WITH MINERALS [Concomitant]
  7. MELATONIN [Concomitant]

REACTIONS (7)
  - ASTHENIA [None]
  - CHEST PAIN [None]
  - DENTAL PULP DISORDER [None]
  - DRY MOUTH [None]
  - DYSPNOEA [None]
  - FEELING ABNORMAL [None]
  - TOOTHACHE [None]
